FAERS Safety Report 11690130 (Version 1)
Quarter: 2015Q4

REPORT INFORMATION
  Report Type: Spontaneous
  Country: None (occurrence: None)
  Receive Date: 20151030
  Receipt Date: 20151030
  Transmission Date: 20160304
  Serious: No
  Sender: FDA-Public Use
  Company Number: None

PATIENT
  Age: 24 Year
  Sex: Female
  Weight: 68.04 kg

DRUGS (1)
  1. CEPHALEXIN. [Suspect]
     Active Substance: CEPHALEXIN
     Indication: ARTHROPOD STING
     Dosage: 1 CAP FOUR TIMES DAILY  TAKEN BY MOUTH
     Route: 048
     Dates: start: 20151021, end: 20151023

REACTIONS (4)
  - Muscle spasms [None]
  - Constipation [None]
  - Heart rate increased [None]
  - Alopecia [None]

NARRATIVE: CASE EVENT DATE: 20151028
